FAERS Safety Report 5828193-X (Version None)
Quarter: 2008Q3

REPORT INFORMATION
  Report Type: 
  Country: None (occurrence: None)
  Receive Date: 20080729
  Receipt Date: 20080722
  Transmission Date: 20090109
  Serious: Yes (Death, Hospitalization, Other)
  Sender: FDA-Public Use
  Company Number: 163-21880-07111106

PATIENT
  Age: 76 Year
  Sex: Male

DRUGS (1)
  1. REVLIMID [Suspect]
     Indication: MYELODYSPLASTIC SYNDROME
     Dosage: 10 MG, QD DAYS 1-21, ORAL
     Route: 048
     Dates: start: 20071001

REACTIONS (3)
  - CARDIAC FAILURE CONGESTIVE [None]
  - MYOCARDIAL INFARCTION [None]
  - PULMONARY EMBOLISM [None]
